FAERS Safety Report 7668944-5 (Version None)
Quarter: 2011Q3

REPORT INFORMATION
  Report Type: 
  Country: None (occurrence: None)
  Receive Date: 20110808
  Receipt Date: 20110801
  Transmission Date: 20111222
  Serious: Yes (Hospitalization)
  Sender: FDA-Public Use
  Company Number: US-GLAXOSMITHKLINE-A0939281A

PATIENT
  Age: 83 Year
  Sex: Female

DRUGS (8)
  1. PLAVIX [Concomitant]
  2. NORVASC [Concomitant]
  3. COREG CR [Suspect]
     Indication: HYPERTENSION
     Dosage: 80MG PER DAY
     Route: 048
     Dates: start: 20090101
  4. RANEXA [Concomitant]
  5. CLONIDINE [Concomitant]
  6. GLIPIZIDE [Concomitant]
  7. ASPIRIN [Concomitant]
  8. PAXIL [Concomitant]

REACTIONS (1)
  - CHEST DISCOMFORT [None]
